FAERS Safety Report 14180922 (Version 1)
Quarter: 2017Q4

REPORT INFORMATION
  Report Type: Spontaneous
  Country: US (occurrence: None)
  Receive Date: 20171109
  Receipt Date: 20171109
  Transmission Date: 20180321
  Serious: Yes (Other)
  Sender: FDA-Public Use
  Company Number: None

PATIENT
  Age: 55 Year
  Sex: Male
  Weight: 83.91 kg

DRUGS (1)
  1. INHALE HEALTH VITAMIN B-COMPLEX MULTIVITAMIN ZERO NICOTINE ORGANIC BASE [Suspect]
     Active Substance: VITAMINS
     Indication: VITAMIN SUPPLEMENTATION
     Route: 050
     Dates: start: 20170630, end: 20170630

REACTIONS (5)
  - Chills [None]
  - Dizziness [None]
  - Pain [None]
  - Pneumonia [None]
  - Fatigue [None]

NARRATIVE: CASE EVENT DATE: 20170630
